FAERS Safety Report 15850715 (Version 11)
Quarter: 2019Q2

REPORT INFORMATION
  Report Type: Spontaneous
  Country: JP (occurrence: JP)
  Receive Date: 20190121
  Receipt Date: 20190626
  Transmission Date: 20190711
  Serious: Yes (Other)
  Sender: FDA-Public Use
  Company Number: JP-ALLERGAN-1902669US

PATIENT
  Sex: Male

DRUGS (33)
  1. HARNAL [Suspect]
     Active Substance: TAMSULOSIN HYDROCHLORIDE
     Dosage: 0.2 MG, QD
     Route: 048
     Dates: start: 2014
  2. BETANIS [Suspect]
     Active Substance: MIRABEGRON
     Dosage: UNK, UNKNOWN
     Route: 048
     Dates: start: 20150407
  3. ARTIST [Concomitant]
     Active Substance: CARVEDILOL
     Dosage: UNK
     Route: 065
  4. ALDACTONE-A [Concomitant]
     Active Substance: SPIRONOLACTONE
     Dosage: UNK
     Route: 048
  5. TAKEPRON [Concomitant]
     Active Substance: LANSOPRAZOLE
     Indication: ANAEMIA
     Dosage: UNK
     Route: 065
  6. LINACLOTIDE - BP [Suspect]
     Active Substance: LINACLOTIDE
     Indication: PRODUCT USED FOR UNKNOWN INDICATION
     Dosage: 0.25 MG, ONCE DAILY
     Route: 048
  7. HARNAL [Suspect]
     Active Substance: TAMSULOSIN HYDROCHLORIDE
     Indication: BENIGN PROSTATIC HYPERPLASIA
     Dosage: UNK, BID
     Route: 048
     Dates: start: 2015, end: 2015
  8. HARNAL [Suspect]
     Active Substance: TAMSULOSIN HYDROCHLORIDE
     Dosage: ACTUAL DOSE: 0.2 MG, TID (TOOK 3 TABLETS DAILY BY MISTAKE)
     Route: 048
  9. BETANIS [Suspect]
     Active Substance: MIRABEGRON
     Dosage: 50 MG, ONCE DAILY
     Route: 048
     Dates: start: 20140731
  10. VESICARE [Suspect]
     Active Substance: SOLIFENACIN SUCCINATE
     Indication: PRODUCT USED FOR UNKNOWN INDICATION
     Dosage: UNK, UNKNOWN
     Route: 048
  11. TRAMCET [Concomitant]
     Active Substance: ACETAMINOPHEN\TRAMADOL
     Dosage: UNK
     Route: 065
  12. BIOFERMIN [Concomitant]
     Active Substance: DIETARY SUPPLEMENT\PROBIOTICS
     Dosage: UNK
     Route: 065
  13. LASIX [Concomitant]
     Active Substance: FUROSEMIDE
     Dosage: UNK
     Route: 065
  14. WARFARIN [Concomitant]
     Active Substance: WARFARIN
     Dosage: UNK
     Route: 065
  15. AVOLVE [Concomitant]
     Active Substance: DUTASTERIDE
     Dosage: UNK
     Route: 065
  16. HARNAL [Suspect]
     Active Substance: TAMSULOSIN HYDROCHLORIDE
     Dosage: 0.2 MG, BID (IN THE MORNING AND EVENING)
     Route: 048
     Dates: start: 20141109
  17. HARNAL [Suspect]
     Active Substance: TAMSULOSIN HYDROCHLORIDE
     Dosage: 0.5 MG, UNKNOWN
     Route: 048
  18. BETANIS [Suspect]
     Active Substance: MIRABEGRON
     Indication: POLLAKIURIA
     Dosage: 25 MG, UNK
     Route: 048
  19. SOLANTAL [Concomitant]
     Active Substance: TIARAMIDE
     Dosage: UNK
     Route: 065
  20. FERROMIA [Concomitant]
     Active Substance: SODIUM FERROUS CITRATE
     Dosage: UNK
     Route: 065
  21. MAGLAX [Concomitant]
     Active Substance: MAGNESIUM OXIDE
     Indication: CONSTIPATION
     Dosage: UNK
     Route: 048
     Dates: start: 2014
  22. HARNAL [Suspect]
     Active Substance: TAMSULOSIN HYDROCHLORIDE
     Indication: DYSURIA
     Dosage: 0.25 MG, QD
     Route: 048
  23. BETANIS [Suspect]
     Active Substance: MIRABEGRON
     Dosage: 25 MG, UNK
     Route: 048
  24. SAMSCA [Concomitant]
     Active Substance: TOLVAPTAN
     Dosage: UNK
     Route: 065
  25. HARNAL [Suspect]
     Active Substance: TAMSULOSIN HYDROCHLORIDE
     Dosage: UNK, UNKNOWN
     Route: 048
  26. BETANIS [Suspect]
     Active Substance: MIRABEGRON
     Dosage: UNK, UNKNOWN
     Route: 048
     Dates: start: 20140721
  27. AMITIZA [Concomitant]
     Active Substance: LUBIPROSTONE
     Dosage: UNK
     Route: 065
  28. LINACLOTIDE - BP [Suspect]
     Active Substance: LINACLOTIDE
     Dosage: 2 DF, QD
     Route: 065
  29. HARNAL [Suspect]
     Active Substance: TAMSULOSIN HYDROCHLORIDE
     Dosage: 0.4 MG, QAM
     Route: 048
     Dates: start: 2014, end: 20141108
  30. ALESION [Suspect]
     Active Substance: EPINASTINE HYDROCHLORIDE
     Indication: PRODUCT USED FOR UNKNOWN INDICATION
     Dosage: UNK
     Route: 065
  31. MAGMITT [Concomitant]
     Active Substance: MAGNESIUM OXIDE
     Dosage: UNK
     Route: 065
  32. MEDICON [Concomitant]
     Active Substance: DEXTROMETHORPHAN HYDROBROMIDE
     Dosage: UNK
     Route: 065
  33. LENDORMIN [Concomitant]
     Active Substance: BROTIZOLAM
     Dosage: UNK
     Route: 048

REACTIONS (47)
  - Micturition disorder [Not Recovered/Not Resolved]
  - Pain in extremity [Not Recovered/Not Resolved]
  - Face oedema [Unknown]
  - Dizziness [Unknown]
  - Dizziness [Recovering/Resolving]
  - Medication error [Unknown]
  - Constipation [Unknown]
  - Faeces hard [Unknown]
  - Dizziness postural [Unknown]
  - Pollakiuria [Not Recovered/Not Resolved]
  - Abdominal discomfort [Unknown]
  - Constipation [Not Recovered/Not Resolved]
  - Dysuria [Recovering/Resolving]
  - Anaemia [Unknown]
  - Catheter placement [Unknown]
  - Abdominal discomfort [Unknown]
  - Abdominal discomfort [Not Recovered/Not Resolved]
  - Therapeutic response increased [Unknown]
  - Diarrhoea [Not Recovered/Not Resolved]
  - Dyschezia [Unknown]
  - Intentional product misuse [Unknown]
  - Faeces soft [Unknown]
  - Dysuria [Not Recovered/Not Resolved]
  - Anuria [Recovering/Resolving]
  - Blood pressure decreased [Unknown]
  - Urine output decreased [Not Recovered/Not Resolved]
  - Accidental overdose [Unknown]
  - Intentional underdose [Unknown]
  - Drug ineffective [Unknown]
  - Dysuria [Unknown]
  - Dysuria [Not Recovered/Not Resolved]
  - Hypoaesthesia [Not Recovered/Not Resolved]
  - Decreased appetite [Unknown]
  - Prescribed underdose [Unknown]
  - Diarrhoea [Unknown]
  - Abdominal pain [Not Recovered/Not Resolved]
  - Fluid retention [Unknown]
  - Haemorrhoids [Not Recovered/Not Resolved]
  - Discomfort [Unknown]
  - Gastrointestinal hypermotility [Not Recovered/Not Resolved]
  - Defaecation disorder [Unknown]
  - Intentional product misuse [Unknown]
  - Cystitis interstitial [Unknown]
  - Micturition urgency [Unknown]
  - Sleep disorder [Unknown]
  - Medication error [Unknown]
  - Hypoaesthesia [Unknown]

NARRATIVE: CASE EVENT DATE: 2014
